FAERS Safety Report 5289413-6 (Version None)
Quarter: 2007Q2

REPORT INFORMATION
  Report Type: 
  Country: None (occurrence: None)
  Receive Date: 20070404
  Receipt Date: 20070404
  Transmission Date: 20071010
  Serious: No
  Sender: FDA-Public Use
  Company Number: None

PATIENT
  Age: 45 Year
  Sex: Female
  Weight: 85 kg

DRUGS (5)
  1. DILANTIN [Suspect]
     Indication: CONVULSION
     Dosage: 200MG BID PO
     Route: 048
     Dates: start: 20070316, end: 20070319
  2. ZANTAC [Concomitant]
  3. NORCO [Concomitant]
  4. DARVOCET [Concomitant]
  5. MYCOSTATIN CREAM [Concomitant]

REACTIONS (2)
  - PRURITUS [None]
  - RASH [None]
